FAERS Safety Report 6609041-7 (Version None)
Quarter: 2010Q1

REPORT INFORMATION
  Report Type: 
  Country: None (occurrence: None)
  Receive Date: 20100301
  Receipt Date: 20100218
  Transmission Date: 20100710
  Serious: Yes (Death)
  Sender: FDA-Public Use
  Company Number: US-ELI_LILLY_AND_COMPANY-US201002006042

PATIENT
  Age: 40 Year
  Sex: Female

DRUGS (3)
  1. OLANZAPINE [Suspect]
     Dosage: 1 D/F, UNK
  2. DULOXETINE HYDROCHLORIDE [Suspect]
     Dosage: 1 D/F, UNK
  3. CITALOPRAM HYDROBROMIDE [Concomitant]

REACTIONS (1)
  - DEATH [None]
